FAERS Safety Report 9785683 (Version 1)
Quarter: 2013Q4

REPORT INFORMATION
  Report Type: Other
  Country: GB (occurrence: GB)
  Receive Date: 20131227
  Receipt Date: 20131227
  Transmission Date: 20140711
  Serious: Yes (Hospitalization)
  Sender: FDA-Public Use
  Company Number: GB-PERRIGO-13GB012873

PATIENT
  Age: 65 Year
  Sex: Male

DRUGS (12)
  1. DEXSOL 0.4MG/ML PL00427/0137 [Suspect]
     Indication: PRODUCT USED FOR UNKNOWN INDICATION
     Dosage: 20 MG, UNK
     Route: 048
     Dates: start: 20120928, end: 20130328
  2. VELCADE [Suspect]
     Indication: PLASMA CELL MYELOMA
     Dosage: 2.5 MG, UNK
     Route: 042
     Dates: start: 20120831, end: 20130328
  3. WARFARIN [Concomitant]
     Indication: ANTICOAGULANT THERAPY
     Dosage: UNK
     Route: 065
  4. LORATADINE [Concomitant]
     Indication: ANTIALLERGIC THERAPY
     Dosage: 10 MG, UNK
     Route: 048
  5. SPIRONOLACTONE [Concomitant]
     Indication: DIURETIC THERAPY
     Dosage: 200 MG, UNK
     Route: 048
  6. SPIRONOLACTONE [Concomitant]
     Dosage: UNK
     Route: 048
  7. BUMETANIDE [Concomitant]
     Indication: DIURETIC THERAPY
     Dosage: 3 MG, UNK
     Route: 048
  8. LANSOPRAZOLE [Concomitant]
     Indication: GASTRITIS
     Dosage: 60 MG, BID
     Route: 048
  9. CITALOPRAM [Concomitant]
     Indication: DEPRESSION
     Dosage: 10 MG, UNK
     Route: 048
  10. GABAPENTIN [Concomitant]
     Dosage: 900 MG, TID
     Route: 048
  11. ZOMORPH [Concomitant]
     Indication: PAIN
     Dosage: 260 MG, BID
     Route: 048
  12. NOZINAN [Concomitant]
     Indication: PAIN
     Dosage: 25 MG, UNK
     Route: 048

REACTIONS (3)
  - Dyspnoea [Recovered/Resolved]
  - Productive cough [Recovered/Resolved]
  - Lower respiratory tract infection [Recovered/Resolved]
